FAERS Safety Report 8199683-2 (Version None)
Quarter: 2012Q1

REPORT INFORMATION
  Report Type: 
  Country: None (occurrence: None)
  Receive Date: 20120311
  Receipt Date: 20120302
  Transmission Date: 20120608
  Serious: Yes (Other)
  Sender: FDA-Public Use
  Company Number: US-ASTRAZENECA-2012SE14909

PATIENT
  Sex: Female

DRUGS (1)
  1. NEXIUM [Suspect]
     Indication: GASTROOESOPHAGEAL REFLUX DISEASE
     Route: 048

REACTIONS (13)
  - SCLERODERMA [None]
  - GASTROOESOPHAGEAL REFLUX DISEASE [None]
  - OFF LABEL USE [None]
  - OSTEOPENIA [None]
  - DRUG DOSE OMISSION [None]
  - BURN OF INTERNAL ORGANS [None]
  - VOMITING [None]
  - GASTROINTESTINAL DISORDER [None]
  - GASTRIC DISORDER [None]
  - INCORRECT DRUG ADMINISTRATION DURATION [None]
  - NAUSEA [None]
  - RAYNAUD'S PHENOMENON [None]
  - IMMUNE SYSTEM DISORDER [None]
